FAERS Safety Report 8156122-5 (Version None)
Quarter: 2012Q1

REPORT INFORMATION
  Report Type: 
  Country: None (occurrence: None)
  Receive Date: 20120222
  Receipt Date: 20120214
  Transmission Date: 20120608
  Serious: Yes (Hospitalization, Disabling)
  Sender: FDA-Public Use
  Company Number: AU-CELGENEUS-008-C5013-11072928

PATIENT
  Sex: Male
  Weight: 70 kg

DRUGS (15)
  1. OMEPRAZOLE [Concomitant]
     Dosage: 20 MILLIGRAM
     Route: 048
     Dates: start: 20110728, end: 20110728
  2. CELESTONE M [Concomitant]
     Indication: RASH
     Dosage: .6
     Route: 061
     Dates: start: 20110704
  3. INTRAGAM P [Concomitant]
     Route: 041
     Dates: start: 20110117
  4. CELESTONE M [Concomitant]
     Route: 061
  5. LENALIDOMIDE [Suspect]
     Dosage: 2.5 MILLIGRAM
     Route: 048
     Dates: start: 20110627, end: 20110714
  6. THIAMINE HCL [Concomitant]
     Indication: NUTRITIONAL SUPPORT
     Dosage: 100 MILLIGRAM
     Route: 048
     Dates: start: 20110726
  7. LENALIDOMIDE [Suspect]
     Dosage: 2.5 MILLIGRAM
     Route: 048
     Dates: start: 20110509
  8. COLOXYL + SENNA [Concomitant]
     Indication: CONSTIPATION
     Route: 048
     Dates: start: 20110727, end: 20110727
  9. DIPROSONE [Concomitant]
     Indication: RASH
     Route: 061
     Dates: start: 20110716
  10. SIGMACORT [Concomitant]
     Indication: RASH
     Route: 061
     Dates: start: 20110715
  11. ACETAMINOPHEN W/ CODEINE [Concomitant]
     Indication: PAIN
     Route: 048
     Dates: start: 20110727, end: 20110801
  12. MOVIPREP [Concomitant]
     Indication: CONSTIPATION
     Dosage: 1 SACHET
     Route: 048
     Dates: start: 20110729, end: 20110730
  13. VITAMIN B-12 [Concomitant]
     Indication: NUTRITIONAL SUPPORT
     Dosage: 1000 MICROGRAM
     Route: 030
     Dates: start: 20110727, end: 20110801
  14. AVENO [Concomitant]
     Indication: RASH
     Route: 061
     Dates: start: 20110704
  15. PANTOPRAZOLE [Concomitant]
     Dosage: 40 MILLIGRAM
     Route: 048
     Dates: start: 20110728

REACTIONS (3)
  - PERIPHERAL MOTOR NEUROPATHY [None]
  - TOXIC OPTIC NEUROPATHY [None]
  - TREMOR [None]
